FAERS Safety Report 5810418-8 (Version None)
Quarter: 2008Q3

REPORT INFORMATION
  Report Type: 
  Country: None (occurrence: None)
  Receive Date: 20080715
  Receipt Date: 20080703
  Transmission Date: 20090109
  Serious: Yes (Hospitalization, Other)
  Sender: FDA-Public Use
  Company Number: FR-PFIZER INC-2008034436

PATIENT
  Sex: Male

DRUGS (1)
  1. CHANTIX [Suspect]

REACTIONS (5)
  - AGITATION [None]
  - CONVERSION DISORDER [None]
  - DELIRIUM [None]
  - DEPRESSION [None]
  - SUICIDAL IDEATION [None]
